FAERS Safety Report 8929338 (Version 1)
Quarter: 2012Q4

REPORT INFORMATION
  Report Type: Spontaneous
  Country: US (occurrence: None)
  Receive Date: 20121126
  Receipt Date: 20121126
  Transmission Date: 20130627
  Serious: Yes (Congenital Anomaly)
  Sender: FDA-Public Use
  Company Number: None

PATIENT
  Sex: Female
  Weight: 80.74 kg

DRUGS (2)
  1. TEGRETOL [Suspect]
     Indication: MENTAL DISORDER
     Dosage: 5 mg 1x dailey -
     Dates: start: 1974, end: 2012
  2. HALDOL [Suspect]
     Dosage: 800 mg 1x daily

REACTIONS (2)
  - Rash erythematous [None]
  - Musculoskeletal stiffness [None]
